FAERS Safety Report 19793970 (Version 1)
Quarter: 2021Q3

REPORT INFORMATION
  Report Type: Report from Study
  Country: AT (occurrence: AT)
  Receive Date: 20210906
  Receipt Date: 20210906
  Transmission Date: 20211014
  Serious: Yes (Other)
  Sender: FDA-Public Use
  Company Number: AT-VIIV HEALTHCARE LIMITED-AT2021EME185623

PATIENT
  Age: 61 Year
  Sex: Male

DRUGS (7)
  1. ZERIT [Interacting]
     Active Substance: STAVUDINE
     Indication: HIV INFECTION
     Dosage: UNK
     Dates: start: 20170101
  2. ZIAGEN [Interacting]
     Active Substance: ABACAVIR SULFATE
     Indication: HIV INFECTION
     Dosage: UNK
     Dates: start: 20170101
  3. DESCOVY [Interacting]
     Active Substance: EMTRICITABINE\TENOFOVIR ALAFENAMIDE FUMARATE
     Indication: HIV INFECTION
     Dosage: UNK
  4. DOLUTEGRAVIR [Suspect]
     Active Substance: DOLUTEGRAVIR
     Indication: HIV INFECTION
     Dosage: UNK
  5. SIMVASTATIN. [Interacting]
     Active Substance: SIMVASTATIN
     Indication: PRODUCT USED FOR UNKNOWN INDICATION
     Dosage: UNK
  6. NORVIR [Interacting]
     Active Substance: RITONAVIR
     Indication: HIV INFECTION
     Dosage: UNK
     Dates: start: 20170101
  7. PREZISTA [Interacting]
     Active Substance: DARUNAVIR ETHANOLATE
     Indication: HIV INFECTION
     Dosage: UNK
     Dates: start: 20170101

REACTIONS (2)
  - Drug interaction [Unknown]
  - Polyneuropathy [Unknown]
